FAERS Safety Report 6859592-5 (Version None)
Quarter: 2010Q3

REPORT INFORMATION
  Report Type: 
  Country: None (occurrence: None)
  Receive Date: 20100719
  Receipt Date: 20080328
  Transmission Date: 20110219
  Serious: Yes (Other)
  Sender: FDA-Public Use
  Company Number: US-PFIZER INC-2008020738

PATIENT
  Age: 37 Year
  Sex: Male
  Weight: 94.3 kg

DRUGS (3)
  1. CHANTIX [Suspect]
     Indication: SMOKING CESSATION THERAPY
     Route: 048
     Dates: start: 20080109, end: 20080128
  2. LISINOPRIL AND HYDROCHLOROTHIAZIDE [Concomitant]
     Dates: start: 20080108, end: 20080128
  3. TRICOR [Concomitant]
     Dates: start: 20080108, end: 20080128

REACTIONS (1)
  - SUICIDAL IDEATION [None]
